FAERS Safety Report 17363723 (Version 1)
Quarter: 2020Q1

REPORT INFORMATION
  Report Type: Spontaneous
  Country: IN (occurrence: IN)
  Receive Date: 20200203
  Receipt Date: 20200203
  Transmission Date: 20200409
  Serious: Yes (Other)
  Sender: FDA-Public Use
  Company Number: IN-ANIPHARMA-2020-IN-000003

PATIENT
  Age: 30 Year
  Sex: Male

DRUGS (2)
  1. CHLORAMPHENICOL [Suspect]
     Active Substance: CHLORAMPHENICOL
     Indication: OSTEOMYELITIS
  2. CIPROFLOXACIN (NON-SPECIFIC) [Suspect]
     Active Substance: CIPROFLOXACIN
     Indication: OSTEOMYELITIS

REACTIONS (2)
  - Blindness [Unknown]
  - Toxic optic neuropathy [Unknown]
